FAERS Safety Report 23046711 (Version 2)
Quarter: 2023Q4

REPORT INFORMATION
  Report Type: Spontaneous
  Country: CZ (occurrence: CZ)
  Receive Date: 20231009
  Receipt Date: 20231016
  Transmission Date: 20240110
  Serious: Yes (Other)
  Sender: FDA-Public Use
  Company Number: CZ-002147023-NVSC2023CZ217006

PATIENT
  Age: 17 Year
  Sex: Female

DRUGS (1)
  1. ALPELISIB [Suspect]
     Active Substance: ALPELISIB
     Indication: Vascular malformation
     Dosage: 200 MG, QD
     Route: 048
     Dates: start: 202011

REACTIONS (7)
  - Type 1 diabetes mellitus [Unknown]
  - Heavy menstrual bleeding [Unknown]
  - Abdominal pain [Unknown]
  - Headache [Unknown]
  - Fibrin D dimer increased [Unknown]
  - Product use in unapproved indication [Unknown]
  - Product use issue [Unknown]
